FAERS Safety Report 10182292 (Version 2)
Quarter: 2014Q2

REPORT INFORMATION
  Report Type: Spontaneous
  Country: BE (occurrence: BE)
  Receive Date: 20140520
  Receipt Date: 20140520
  Transmission Date: 20141212
  Serious: Yes (Other)
  Sender: FDA-Public Use
  Company Number: BE-AMGEN INC.-BELSP2014030262

PATIENT
  Age: 78 Year
  Sex: Male
  Weight: 73 kg

DRUGS (4)
  1. XGEVA [Suspect]
     Indication: METASTASES TO BONE
     Dosage: 120 MG, Q4WK
     Route: 058
     Dates: start: 201312
  2. STEOVIT D3 [Concomitant]
     Dosage: 500 MG, UNK
  3. CALCIUM [Concomitant]
     Route: 048
  4. DOCETAXEL [Concomitant]
     Dosage: 500 UNK, UNK

REACTIONS (2)
  - Muscle spasms [Unknown]
  - Hypocalcaemia [Recovered/Resolved]
